FAERS Safety Report 4513131-2 (Version None)
Quarter: 2004Q4

REPORT INFORMATION
  Report Type: 
  Country: None (occurrence: None)
  Receive Date: 20041124
  Receipt Date: 20041111
  Transmission Date: 20050328
  Serious: Yes (Other)
  Sender: FDA-Public Use
  Company Number: HQWYE455112NOV04

PATIENT
  Age: 79 Year
  Sex: Female

DRUGS (5)
  1. PROTONIX [Suspect]
     Indication: UPPER GASTROINTESTINAL HAEMORRHAGE
     Dosage: 80 MG 1X PER 12 HR, INTRAVENOUS
     Route: 042
     Dates: start: 20041107, end: 20041109
  2. PROTONIX [Suspect]
     Indication: GASTROINTESTINAL HAEMORRHAGE
     Dosage: 40 MG 2X PER 1 DAY
     Dates: start: 20041110
  3. INSULIN [Concomitant]
  4. MULTIVITAMINS (ASCORBIC ACID/ERGOCALCIFEROL/FOLIC ACID/NICOTINAMIDE/PA [Concomitant]
  5. OCTREOTIDE ACETATE [Concomitant]

REACTIONS (2)
  - GASTRIC ULCER [None]
  - THROMBOCYTOPENIA [None]
